FAERS Safety Report 5344171-1 (Version None)
Quarter: 2007Q2

REPORT INFORMATION
  Report Type: 
  Country: None (occurrence: None)
  Receive Date: 20070604
  Receipt Date: 20070528
  Transmission Date: 20071010
  Serious: Yes (Death, Hospitalization)
  Sender: FDA-Public Use
  Company Number: AU-ROCHE-470218

PATIENT
  Age: 65 Year
  Sex: Female
  Weight: 69 kg

DRUGS (2)
  1. CAPECITABINE [Suspect]
     Dosage: ADMINISTERED ON DAYS 1-14, Q3 WEEKLY.
     Route: 048
     Dates: start: 20061004
  2. BEVACIZUMAB [Suspect]
     Dosage: ADMINISTERED Q3 WEEKLY.
     Route: 042
     Dates: start: 20061004

REACTIONS (1)
  - TUMOUR PERFORATION [None]
